FAERS Safety Report 13552123 (Version 3)
Quarter: 2017Q4

REPORT INFORMATION
  Report Type: Spontaneous
  Country: US (occurrence: US)
  Receive Date: 20170516
  Receipt Date: 20171021
  Transmission Date: 20180320
  Serious: No
  Sender: FDA-Public Use
  Company Number: PHEH2017US014530

PATIENT
  Sex: Female
  Weight: 72.56 kg

DRUGS (1)
  1. ZOFRAN [Suspect]
     Active Substance: ONDANSETRON HYDROCHLORIDE
     Indication: VOMITING IN PREGNANCY
     Route: 048
     Dates: start: 200411, end: 200412

REACTIONS (8)
  - Injury [Unknown]
  - Vaginal haemorrhage [Unknown]
  - Pain [Unknown]
  - Emotional distress [Unknown]
  - Candida infection [Unknown]
  - Maternal exposure during pregnancy [Unknown]
  - Product use in unapproved indication [Unknown]
  - Anxiety [Unknown]
